FAERS Safety Report 7383525-9 (Version None)
Quarter: 2011Q1

REPORT INFORMATION
  Report Type: 
  Country: None (occurrence: None)
  Receive Date: 20110330
  Receipt Date: 20110323
  Transmission Date: 20110831
  Serious: Yes (Other)
  Sender: FDA-Public Use
  Company Number: SI-JNJFOC-20110310589

PATIENT

DRUGS (1)
  1. CAELYX [Suspect]
     Indication: PRODUCT USED FOR UNKNOWN INDICATION
     Route: 042

REACTIONS (8)
  - FLUSHING [None]
  - CYANOSIS [None]
  - BLOOD PRESSURE IMMEASURABLE [None]
  - PULSE ABSENT [None]
  - INFUSION RELATED REACTION [None]
  - HYPERSENSITIVITY [None]
  - VISUAL IMPAIRMENT [None]
  - DYSPNOEA [None]
